FAERS Safety Report 5642556-7 (Version None)
Quarter: 2008Q1

REPORT INFORMATION
  Report Type: 
  Country: None (occurrence: None)
  Receive Date: 20080226
  Receipt Date: 20080213
  Transmission Date: 20080703
  Serious: Yes (Death, Hospitalization)
  Sender: FDA-Public Use
  Company Number: 2008US000520

PATIENT
  Age: 47 Year
  Sex: 0

DRUGS (2)
  1. AMBISOME [Suspect]
     Indication: MUCORMYCOSIS
     Dosage: 5 MG/KG, UID/QD
     Dates: start: 20070123, end: 20070323
  2. POSACONAZOLE [Concomitant]

REACTIONS (3)
  - HYPOKALAEMIA [None]
  - HYPOTHERMIA [None]
  - LUNG NEOPLASM MALIGNANT [None]
